FAERS Safety Report 8159957-8 (Version None)
Quarter: 2012Q1

REPORT INFORMATION
  Report Type: 
  Country: None (occurrence: None)
  Receive Date: 20120223
  Receipt Date: 20120216
  Transmission Date: 20120608
  Serious: Yes (Hospitalization)
  Sender: FDA-Public Use
  Company Number: US-GLAXOSMITHKLINE-A0829287A

PATIENT
  Age: 47 Year
  Sex: Male
  Weight: 227.3 kg

DRUGS (8)
  1. COMBIVENT [Concomitant]
  2. METOPROLOL [Concomitant]
  3. ALBUTEROL [Concomitant]
  4. LISINOPRIL [Concomitant]
  5. GABAPENTIN [Concomitant]
  6. INSULIN [Concomitant]
  7. AVANDIA [Suspect]
     Indication: TYPE 2 DIABETES MELLITUS
     Dosage: 4MG TWICE PER DAY
     Route: 048
     Dates: start: 20050501, end: 20080801
  8. LIPITOR [Concomitant]

REACTIONS (10)
  - ACCIDENTAL OVERDOSE [None]
  - FLUID RETENTION [None]
  - CARDIOVASCULAR DISORDER [None]
  - CHRONIC OBSTRUCTIVE PULMONARY DISEASE [None]
  - LEG AMPUTATION [None]
  - SKIN ULCER [None]
  - SUBCUTANEOUS HAEMATOMA [None]
  - SCROTAL ABSCESS [None]
  - CARDIAC FAILURE CONGESTIVE [None]
  - RESPIRATORY FAILURE [None]
